FAERS Safety Report 19236378 (Version 1)
Quarter: 2021Q2

REPORT INFORMATION
  Report Type: Spontaneous
  Country: US (occurrence: US)
  Receive Date: 20210510
  Receipt Date: 20210510
  Transmission Date: 20210717
  Serious: Yes (Other)
  Sender: FDA-Public Use
  Company Number: US-JNJFOC-20210507832

PATIENT
  Age: 82 Year
  Sex: Male

DRUGS (1)
  1. DARZALEX FASPRO [Suspect]
     Active Substance: DARATUMUMAB\HYALURONIDASE-FIHJ
     Indication: PLASMA CELL MYELOMA
     Route: 058
     Dates: start: 202012, end: 20210303

REACTIONS (4)
  - Asthenia [Unknown]
  - Platelet count decreased [Unknown]
  - Plasma cell myeloma [Unknown]
  - Product dose omission issue [Unknown]
